FAERS Safety Report 5272951-X (Version None)
Quarter: 2007Q1

REPORT INFORMATION
  Report Type: 
  Country: None (occurrence: None)
  Receive Date: 20061219
  Receipt Date: 20061010
  Transmission Date: 20070707
  Serious: Yes (Hospitalization, Other)
  Sender: FDA-Public Use
  Company Number: US-JNJFOC-20061003031

PATIENT
  Age: 50 Year
  Sex: Female

DRUGS (6)
  1. ORTHO EVRA [Suspect]
     Indication: CONTRACEPTION
     Dates: start: 20040101, end: 20060101
  2. TRAMADOL HCL [Concomitant]
  3. TYLENOL (CAPLET) [Concomitant]
  4. SIMVASTATIN [Concomitant]
  5. FELDINE (PIROXICAM) [Concomitant]
  6. CALCIUM (CALCIUM) [Concomitant]

REACTIONS (4)
  - DEEP VEIN THROMBOSIS [None]
  - DIZZINESS [None]
  - HEADACHE [None]
  - NAUSEA [None]
